FAERS Safety Report 8584988-3 (Version None)
Quarter: 2012Q3

REPORT INFORMATION
  Report Type: 
  Country: None (occurrence: None)
  Receive Date: 20120810
  Receipt Date: 20120807
  Transmission Date: 20120928
  Serious: Yes (Death, Other)
  Sender: FDA-Public Use
  Company Number: BR-PFIZER INC-2012192066

PATIENT
  Sex: Female

DRUGS (2)
  1. ZOMETA [Concomitant]
     Dosage: ONCE A MONTH
  2. SUTENT [Suspect]
     Indication: RENAL CELL CARCINOMA
     Dosage: 50 MG, UNSPECIFIED FREQUENCY (CYCLE 4 TO 2)
     Route: 048
     Dates: start: 20120601

REACTIONS (1)
  - DEATH [None]
